FAERS Safety Report 9332128 (Version 3)
Quarter: 2013Q4

REPORT INFORMATION
  Report Type: Report from Study
  Country: CA (occurrence: CA)
  Receive Date: 20130606
  Receipt Date: 20131226
  Transmission Date: 20140711
  Serious: Yes (Other)
  Sender: FDA-Public Use
  Company Number: CA-ROCHE-1176960

PATIENT
  Age: 53 Year
  Sex: Female
  Weight: 60.6 kg

DRUGS (10)
  1. ACTEMRA [Suspect]
     Indication: RHEUMATOID ARTHRITIS
     Route: 042
     Dates: start: 20111207
  2. ACTEMRA [Suspect]
     Route: 042
     Dates: start: 20120509
  3. AMOXIL [Suspect]
     Indication: SINUSITIS
     Route: 048
     Dates: start: 201301
  4. PANTOLOC [Concomitant]
  5. METHOTREXATE [Concomitant]
  6. FOLIC ACID [Concomitant]
  7. CALCIUM D 500 [Concomitant]
  8. CELEBREX [Concomitant]
  9. DOMPERIDONE [Concomitant]
  10. SALINEX (SODIUM CHLORIDE) [Concomitant]

REACTIONS (7)
  - Diabetes mellitus [Not Recovered/Not Resolved]
  - Sinusitis [Recovered/Resolved]
  - Fungal infection [Recovered/Resolved]
  - Hepatic enzyme increased [Not Recovered/Not Resolved]
  - Arthralgia [Not Recovered/Not Resolved]
  - Urinary tract infection [Unknown]
  - Lip pain [Recovered/Resolved]
